FAERS Safety Report 18121114 (Version 2)
Quarter: 2020Q3

REPORT INFORMATION
  Report Type: Report from Study
  Country: KR (occurrence: KR)
  Receive Date: 20200806
  Receipt Date: 20200807
  Transmission Date: 20201103
  Serious: Yes (Death, Hospitalization)
  Sender: FDA-Public Use
  Company Number: KR-009507513-2005KOR000181

PATIENT
  Age: 77 Year
  Sex: Male
  Weight: 66 kg

DRUGS (11)
  1. PACLITAXEL. [Suspect]
     Active Substance: PACLITAXEL
     Indication: NON-SMALL CELL LUNG CANCER STAGE IV
     Dosage: 200 MILLIGRAM/SQ. METER, Q3W ON DAY 1
     Route: 042
     Dates: start: 20200330, end: 20200330
  2. EXFORGE [Concomitant]
     Active Substance: AMLODIPINE BESYLATE\VALSARTAN
     Indication: HYPERTENSION
     Dosage: 1 TABLET, QD
     Route: 048
     Dates: start: 201701
  3. ENCOVER [Concomitant]
     Indication: DECREASED APPETITE
     Dosage: 200 ML DAILY, PRN
     Route: 048
     Dates: start: 20200409
  4. GRASIN [Concomitant]
     Indication: NEUTROPHIL COUNT DECREASED
     Dosage: 1 SYRINGE, ONCE
     Route: 058
     Dates: start: 20200409, end: 20200409
  5. MAGNESIUM OXIDE. [Concomitant]
     Active Substance: MAGNESIUM OXIDE
     Indication: CONSTIPATION
     Dosage: 500 MILLIGRAM, TID
     Route: 048
     Dates: start: 20200409
  6. PEMBROLIZUMAB. [Suspect]
     Active Substance: PEMBROLIZUMAB
     Indication: NON-SMALL CELL LUNG CANCER STAGE IV
     Dosage: 200 MILLIGRAM, Q3W ON DAY 1
     Route: 042
     Dates: start: 20200330, end: 20200330
  7. CARBOPLATIN. [Suspect]
     Active Substance: CARBOPLATIN
     Indication: NON-SMALL CELL LUNG CANCER STAGE IV
     Dosage: TITRATED TO AN AREA UNDER THE CURVE (AUC) OF 6 MG/ML/MIN, Q3W ON DAY 1
     Route: 042
     Dates: start: 20200330, end: 20200330
  8. CODEINE [Concomitant]
     Active Substance: CODEINE
     Indication: COUGH
     Dosage: 20 MILLIGRAM, QID
     Route: 048
     Dates: start: 20200330, end: 20200428
  9. LACTICARE?HC [Concomitant]
     Indication: PRURITUS
     Dosage: TOTAL DAILY DOSE: 118 G, PRN
     Route: 061
     Dates: start: 20200409
  10. MYPOL [Concomitant]
     Indication: PARAESTHESIA
     Dosage: 1 CAPSULE, TID
     Route: 048
     Dates: start: 20200409, end: 20200419
  11. TRANSAMIN [Concomitant]
     Active Substance: TRANEXAMIC ACID
     Indication: HAEMOPTYSIS
     Dosage: 250 MILLIGRAM, TID
     Route: 048
     Dates: start: 20200409

REACTIONS (3)
  - Aspartate aminotransferase increased [Not Recovered/Not Resolved]
  - Alanine aminotransferase increased [Not Recovered/Not Resolved]
  - Myocarditis [Fatal]

NARRATIVE: CASE EVENT DATE: 20200420
